FAERS Safety Report 7091993-5 (Version None)
Quarter: 2010Q4

REPORT INFORMATION
  Report Type: 
  Country: None (occurrence: None)
  Receive Date: 20101101
  Receipt Date: 20101015
  Transmission Date: 20110411
  Serious: Yes (Other)
  Sender: FDA-Public Use
  Company Number: ACO_02841_2010

PATIENT
  Sex: Female
  Weight: 47.6277 kg

DRUGS (13)
  1. AMPYRA [Suspect]
     Indication: GAIT DISTURBANCE
     Dosage: (10 MG 1X/12 HOURS)
     Dates: start: 20100924, end: 20100926
  2. VESICARE [Concomitant]
  3. AMANTADINE [Concomitant]
  4. MENOPAUSE FORMULA [Concomitant]
  5. ENULOSE [Concomitant]
  6. CITRACAL [Concomitant]
  7. BRAIN HEALTH SUPPORT TABLET [Concomitant]
  8. NITROFURANTOIN [Concomitant]
  9. POLYETHYLENE GLYCOL [Concomitant]
  10. VITAMIN E /00110501/ [Concomitant]
  11. VITAMIN D [Concomitant]
  12. VITAMIN C /00008001/ [Concomitant]
  13. PROGESTERONE [Concomitant]

REACTIONS (3)
  - CONVULSION [None]
  - MEMORY IMPAIRMENT [None]
  - URINARY INCONTINENCE [None]
